FAERS Safety Report 6648056-X (Version None)
Quarter: 2010Q1

REPORT INFORMATION
  Report Type: 
  Country: None (occurrence: None)
  Receive Date: 20100324
  Receipt Date: 20100310
  Transmission Date: 20100710
  Serious: Yes (Other)
  Sender: FDA-Public Use
  Company Number: US-CELGENEUS-163-20785-09111012

PATIENT
  Age: 89 Year
  Sex: Male
  Weight: 74 kg

DRUGS (7)
  1. THALOMID [Suspect]
     Route: 048
     Dates: start: 20081203, end: 20091029
  2. MELPHALAN HYDROCHLORIDE [Suspect]
     Route: 048
     Dates: start: 20081203, end: 20090810
  3. PREDNISONE [Suspect]
     Route: 048
     Dates: start: 20081203, end: 20091005
  4. ASPIRIN [Concomitant]
     Indication: DRUG USE FOR UNKNOWN INDICATION
     Route: 048
  5. MULTI-VITAMINS [Concomitant]
     Indication: DRUG USE FOR UNKNOWN INDICATION
     Route: 065
  6. NIACIN [Concomitant]
     Indication: DRUG USE FOR UNKNOWN INDICATION
     Route: 065
  7. SENOKOT [Concomitant]
     Indication: DRUG USE FOR UNKNOWN INDICATION
     Route: 065

REACTIONS (3)
  - HAEMOGLOBIN DECREASED [None]
  - MYELODYSPLASTIC SYNDROME [None]
  - NEUTROPHIL COUNT DECREASED [None]
